FAERS Safety Report 12501113 (Version 1)
Quarter: 2016Q2

REPORT INFORMATION
  Report Type: Spontaneous
  Country: US (occurrence: US)
  Receive Date: 20160627
  Receipt Date: 20160627
  Transmission Date: 20160815
  Serious: No
  Sender: FDA-Public Use
  Company Number: US-BAUSCH-BL-2015-017030

PATIENT
  Age: 23 Year
  Sex: Female
  Weight: 56.75 kg

DRUGS (3)
  1. SOLODYN [Suspect]
     Active Substance: MINOCYCLINE HYDROCHLORIDE
     Dates: start: 2014, end: 2014
  2. SOLODYN [Suspect]
     Active Substance: MINOCYCLINE HYDROCHLORIDE
     Indication: ACNE
     Route: 048
     Dates: start: 201409, end: 2014
  3. SOLODYN [Suspect]
     Active Substance: MINOCYCLINE HYDROCHLORIDE
     Dates: start: 2014, end: 201412

REACTIONS (2)
  - Alopecia [Not Recovered/Not Resolved]
  - Drug ineffective [Not Recovered/Not Resolved]
